FAERS Safety Report 25205469 (Version 1)
Quarter: 2025Q2

REPORT INFORMATION
  Report Type: Spontaneous
  Country: HK (occurrence: HK)
  Receive Date: 20250417
  Receipt Date: 20250417
  Transmission Date: 20250717
  Serious: Yes (Life-Threatening, Other)
  Sender: SANDOZ
  Company Number: HK-ASPEN-GLO2025HK002879

PATIENT

DRUGS (3)
  1. ATRACURIUM [Suspect]
     Active Substance: ATRACURIUM
     Indication: Surgery
     Route: 065
  2. CISATRACURIUM BESYLATE [Suspect]
     Active Substance: CISATRACURIUM BESYLATE
     Indication: Surgery
     Route: 065
  3. MIVACURIUM CHLORIDE [Suspect]
     Active Substance: MIVACURIUM CHLORIDE
     Indication: Surgery
     Route: 065

REACTIONS (1)
  - Anaphylactic reaction [Unknown]
